FAERS Safety Report 10833729 (Version 1)
Quarter: 2015Q1

REPORT INFORMATION
  Report Type: Spontaneous
  Country: US (occurrence: US)
  Receive Date: 20150219
  Receipt Date: 20150219
  Transmission Date: 20150721
  Serious: Yes (Death)
  Sender: FDA-Public Use
  Company Number: US-CELGENE-USA-2015022417

PATIENT

DRUGS (2)
  1. DECITABINE. [Suspect]
     Active Substance: DECITABINE
     Indication: MYELODYSPLASTIC SYNDROME
     Route: 041
  2. VIDAZA [Suspect]
     Active Substance: AZACITIDINE
     Indication: MYELODYSPLASTIC SYNDROME
     Dosage: 8.0357 MILLIGRAM
     Route: 065

REACTIONS (3)
  - Myelodysplastic syndrome [Unknown]
  - Death [Fatal]
  - Drug ineffective [Unknown]
